FAERS Safety Report 6337350-8 (Version None)
Quarter: 2009Q3

REPORT INFORMATION
  Report Type: 
  Country: None (occurrence: None)
  Receive Date: 20090901
  Receipt Date: 20090901
  Transmission Date: 20100115
  Serious: Yes (Disabling)
  Sender: FDA-Public Use
  Company Number: None

PATIENT
  Age: 77 Year
  Sex: Female
  Weight: 68.0396 kg

DRUGS (5)
  1. ALENDRONATE SODIUM [Suspect]
     Indication: OSTEOPOROSIS
     Dosage: 70 MG. 1 PER WEEK ORAL
     Route: 048
     Dates: start: 20070101, end: 20090601
  2. FOSAMAX [Suspect]
     Indication: OSTEOPOROSIS
     Dosage: 70 MG 1 PER WEEK ORAL
     Route: 048
     Dates: start: 20050901, end: 20070101
  3. FELODIPINE [Concomitant]
  4. LISINOPRIL [Concomitant]
  5. SIMVASTATIN [Concomitant]

REACTIONS (4)
  - CHOKING [None]
  - DYSPHAGIA [None]
  - OESOPHAGEAL DISORDER [None]
  - OESOPHAGEAL INJURY [None]
